FAERS Safety Report 15185527 (Version 1)
Quarter: 2018Q3

REPORT INFORMATION
  Report Type: Report from Study
  Country: US (occurrence: US)
  Receive Date: 20180723
  Receipt Date: 20180723
  Transmission Date: 20181010
  Serious: Yes (Other)
  Sender: FDA-Public Use
  Company Number: US-SHIRE-US201827122

PATIENT
  Sex: Female

DRUGS (1)
  1. CINRYZE [Suspect]
     Active Substance: HUMAN C1-ESTERASE INHIBITOR
     Indication: IMMUNE SYSTEM DISORDER
     Dosage: 1000 IU, EVERY 3 TO 4 DAYS
     Route: 042
     Dates: start: 20180411

REACTIONS (4)
  - Complication associated with device [Unknown]
  - Drug abuse [Unknown]
  - Device related infection [Unknown]
  - Feeling jittery [Unknown]
